FAERS Safety Report 21143592 (Version 5)
Quarter: 2023Q2

REPORT INFORMATION
  Report Type: Report from Study
  Country: US (occurrence: US)
  Receive Date: 20220728
  Receipt Date: 20230623
  Transmission Date: 20230722
  Serious: Yes (Other)
  Sender: FDA-Public Use
  Company Number: US-TAKEDA-2022TUS001127

PATIENT
  Age: 69 Year
  Sex: Female
  Weight: 57 kg

DRUGS (32)
  1. HUMAN IMMUNOGLOBULIN G [Suspect]
     Active Substance: HUMAN IMMUNOGLOBULIN G
     Indication: Immunodeficiency common variable
     Dosage: 6 GRAM, 1/WEEK
     Route: 058
     Dates: start: 20211029
  2. BENADRYL [Suspect]
     Active Substance: DIPHENHYDRAMINE HYDROCHLORIDE
     Indication: Product used for unknown indication
     Dosage: UNK
     Route: 065
  3. DIPHENHYDRAMINE [Concomitant]
     Active Substance: DIPHENHYDRAMINE
  4. BUMETANIDE [Concomitant]
     Active Substance: BUMETANIDE
  5. EPINEPHRINE [Concomitant]
     Active Substance: EPINEPHRINE
  6. HYDROXYCHLOROQUINE SULFATE [Concomitant]
     Active Substance: HYDROXYCHLOROQUINE SULFATE
  7. LIOTHYRONINE SODIUM [Concomitant]
     Active Substance: LIOTHYRONINE SODIUM
  8. PREDNISONE [Concomitant]
     Active Substance: PREDNISONE
  9. METHENAMINE HIPPURATE [Concomitant]
     Active Substance: METHENAMINE HIPPURATE
  10. ACETAMINOPHEN [Concomitant]
     Active Substance: ACETAMINOPHEN
  11. PERCOCET [Concomitant]
     Active Substance: ACETAMINOPHEN\OXYCODONE HYDROCHLORIDE
  12. NITROGLYCERIN [Concomitant]
     Active Substance: NITROGLYCERIN
  13. BYSTOLIC [Concomitant]
     Active Substance: NEBIVOLOL HYDROCHLORIDE
  14. MOVANTIK [Concomitant]
     Active Substance: NALOXEGOL OXALATE
  15. GABAPENTIN [Concomitant]
     Active Substance: GABAPENTIN
  16. FOLIC ACID [Concomitant]
     Active Substance: FOLIC ACID
  17. LUNESTA [Concomitant]
     Active Substance: ESZOPICLONE
  18. PRASUGREL HYDROCHLORIDE [Concomitant]
     Active Substance: PRASUGREL HYDROCHLORIDE
  19. RANEXA [Concomitant]
     Active Substance: RANOLAZINE
  20. ZETIA [Concomitant]
     Active Substance: EZETIMIBE
  21. Lmx [Concomitant]
  22. METHOTREXATE [Concomitant]
     Active Substance: METHOTREXATE
  23. VITAMIN D [Concomitant]
     Active Substance: VITAMIN D NOS
  24. PANTOPRAZOLE SODIUM [Concomitant]
     Active Substance: PANTOPRAZOLE SODIUM
  25. ENTRESTO [Concomitant]
     Active Substance: SACUBITRIL\VALSARTAN
  26. LEVOTHYROXINE SODIUM [Concomitant]
     Active Substance: LEVOTHYROXINE SODIUM
     Route: 065
  27. VITAMIN D3 [Concomitant]
     Active Substance: CHOLECALCIFEROL
     Dosage: UNK
  28. LIOTHYRONINE [Concomitant]
     Active Substance: LIOTHYRONINE
  29. PRASUGREL [Concomitant]
     Active Substance: PRASUGREL
  30. PANTOPRAZOLE [Concomitant]
     Active Substance: PANTOPRAZOLE
  31. LEVOTHYROXINE [Concomitant]
     Active Substance: LEVOTHYROXINE
  32. METHENAMINE [Concomitant]
     Active Substance: METHENAMINE

REACTIONS (9)
  - Myasthenia gravis [Unknown]
  - Neuromyopathy [Unknown]
  - Cystitis [Unknown]
  - Nasopharyngitis [Unknown]
  - Drug hypersensitivity [Unknown]
  - Nervous system disorder [Unknown]
  - Urinary tract infection [Unknown]
  - Infusion site bruising [Unknown]
  - Product dose omission issue [Unknown]

NARRATIVE: CASE EVENT DATE: 20220428
